FAERS Safety Report 8141699-6 (Version None)
Quarter: 2012Q1

REPORT INFORMATION
  Report Type: 
  Country: None (occurrence: None)
  Receive Date: 20120216
  Receipt Date: 20120215
  Transmission Date: 20120608
  Serious: Yes (Death)
  Sender: FDA-Public Use
  Company Number: PHHY2012NL004298

PATIENT
  Sex: Female
  Weight: 65 kg

DRUGS (25)
  1. DICLOFENAC [Concomitant]
     Dosage: (3X50)
  2. LEVONORGESTREL + ETHINYL ESTRADIOL [Concomitant]
  3. DOMPERIDONE [Concomitant]
     Dosage: 10 MG, TID
  4. BUPRENORPHINE [Concomitant]
     Dosage: 25 UG/3 DYAS, PATCH
  5. FOSINOPRIL SODIUM [Concomitant]
     Dosage: 30 MG, UNK
  6. METOPROLOL TARTRATE [Concomitant]
     Dosage: 25 MG, BID
  7. LEFLUNOMIDE [Concomitant]
     Dosage: 10 MG, UNK
  8. BUPRENORPHINE HCL [Concomitant]
     Dosage: 0.2 MG, BID
  9. VITAMIN B NOS [Concomitant]
  10. ZOLEDRONOC ACID [Suspect]
     Dosage: 5 MG, PER 364 DAYS
     Route: 042
     Dates: start: 20110101
  11. LOPERAMIDE HCL [Concomitant]
     Dosage: 2 MG, X2
  12. LORAZEPAM [Concomitant]
     Dosage: 0.5 MG, UNK
  13. ASCORBIC ACID [Concomitant]
  14. FAMOTIDINE [Concomitant]
     Dosage: 20 MG, X 3
  15. FUROSEMIDE [Concomitant]
     Dosage: 20 MG, UNK
  16. FLUOXETINE [Concomitant]
     Dosage: 15 MG, UNK
  17. OLOPATADINE HYDROCHLORIDE (ALOVENT ) [Concomitant]
     Dosage: 2X2PUFFS
  18. ACENOCOUMAROL [Concomitant]
  19. FLUCONAZOLE [Concomitant]
     Dosage: 200 MG, UNK
  20. PREDNISONE [Concomitant]
     Dosage: 7.5 MG, UNK
  21. OMEPRAZOLE [Concomitant]
     Dosage: 40 MG, BID
  22. VITAMIN D [Concomitant]
  23. ZOLEDRONOC ACID [Suspect]
     Indication: OSTEOPOROSIS
     Dosage: 5 MG, PER 364 DAYS
     Route: 042
     Dates: start: 20100101
  24. METFORMIN HCL [Concomitant]
     Dosage: 500 MG, UNK
  25. FLUTICASONE PROPIONATE/SALMETEROL [Concomitant]

REACTIONS (1)
  - DEATH [None]
